FAERS Safety Report 8080181-1 (Version None)
Quarter: 2012Q1

REPORT INFORMATION
  Report Type: 
  Country: None (occurrence: None)
  Receive Date: 20120130
  Receipt Date: 20120124
  Transmission Date: 20120608
  Serious: Yes (Death, Hospitalization)
  Sender: FDA-Public Use
  Company Number: NL-TEVA-319043ISR

PATIENT
  Sex: Male

DRUGS (1)
  1. DEXAMETHASONE [Suspect]
     Dosage: 68 MILLIGRAM;
     Route: 048
     Dates: start: 20090616

REACTIONS (2)
  - MENINGITIS [None]
  - OVERDOSE [None]
